FAERS Safety Report 8486384-6 (Version None)
Quarter: 2012Q3

REPORT INFORMATION
  Report Type: 
  Country: None (occurrence: None)
  Receive Date: 20120703
  Receipt Date: 20120628
  Transmission Date: 20120928
  Serious: Yes (Other)
  Sender: FDA-Public Use
  Company Number: GB-GLAXOSMITHKLINE-B0811278A

PATIENT
  Age: 40 Year
  Sex: Female

DRUGS (5)
  1. NASONEX [Suspect]
     Indication: ASTHMA
     Route: 065
  2. TIOTROPIUM [Suspect]
     Indication: ASTHMA
     Dosage: 18MCG PER DAY
     Route: 065
  3. FLUTICASONE PROPIONATE/SALMETEROL [Suspect]
     Indication: ASTHMA
     Dosage: 100MCG PER DAY
     Route: 065
  4. CETIRIZINE [Suspect]
     Indication: ASTHMA
     Dosage: 10MG PER DAY
     Route: 065
  5. VENTOLIN [Suspect]
     Indication: ASTHMA
     Route: 065

REACTIONS (5)
  - WHEEZING [None]
  - INFECTION [None]
  - ASTHMA [None]
  - DRUG INEFFECTIVE [None]
  - COUGH [None]
